FAERS Safety Report 7527645-4 (Version None)
Quarter: 2011Q2

REPORT INFORMATION
  Report Type: 
  Country: None (occurrence: None)
  Receive Date: 20110607
  Receipt Date: 20110526
  Transmission Date: 20111010
  Serious: Yes (Other)
  Sender: FDA-Public Use
  Company Number: US-RANBAXY-2011US-44123

PATIENT

DRUGS (4)
  1. HYTRIN [Concomitant]
     Indication: PRODUCT USED FOR UNKNOWN INDICATION
     Dosage: 5 MG, UNK
     Route: 065
  2. LORATADINE [Suspect]
     Indication: HYPERSENSITIVITY
     Dosage: 10 MG, QD
     Route: 048
  3. LORATADINE [Suspect]
     Indication: EYE DISCHARGE
  4. LORATADINE [Suspect]
     Indication: RHINORRHOEA

REACTIONS (2)
  - SURGERY [None]
  - DYSURIA [None]
